FAERS Safety Report 19552370 (Version 2)
Quarter: 2022Q1

REPORT INFORMATION
  Report Type: Other
  Country: CA (occurrence: None)
  Receive Date: 20210715
  Receipt Date: 20220114
  Transmission Date: 20220424
  Serious: Yes (Other)
  Sender: FDA-Public Use
  Company Number: CA-ROCHE-2867563

PATIENT
  Sex: Female
  Weight: 106 kg

DRUGS (33)
  1. OCREVUS [Suspect]
     Active Substance: OCRELIZUMAB
     Indication: Primary progressive multiple sclerosis
     Dosage: 300 MG AT DAY 0 AND 14, THEN 600 MG EVERY 6 MONTH
     Route: 042
     Dates: start: 20180831
  2. OCREVUS [Suspect]
     Active Substance: OCRELIZUMAB
     Route: 042
  3. ESCITALOPRAM [Concomitant]
     Active Substance: ESCITALOPRAM OXALATE
  4. LEVETIRACETAM [Concomitant]
     Active Substance: LEVETIRACETAM
  5. CRANBERRY [Concomitant]
     Active Substance: CRANBERRY
  6. PROBIOTICS NOS [Concomitant]
     Active Substance: PROBIOTICS NOS
  7. METHYLPHENIDATE [Concomitant]
     Active Substance: METHYLPHENIDATE
     Dosage: VIA J TUBE
  8. OXYBUTYNIN [Concomitant]
     Active Substance: OXYBUTYNIN
  9. PREGABALIN [Concomitant]
     Active Substance: PREGABALIN
     Dosage: 2 CAPS QAM AND 1 CAP QHS
  10. PRAZOSIN [Concomitant]
     Active Substance: PRAZOSIN
  11. DIENOGEST [Concomitant]
     Active Substance: DIENOGEST
  12. MAGNESIUM CITRATE [Concomitant]
     Active Substance: MAGNESIUM CITRATE
  13. METADOL (CANADA) [Concomitant]
  14. HYDROMORPHONE [Concomitant]
     Active Substance: HYDROMORPHONE
  15. LAMOTRIGINE [Concomitant]
     Active Substance: LAMOTRIGINE
  16. NITROFURANTOIN [Concomitant]
     Active Substance: NITROFURANTOIN
  17. OMEGA-3 ACIDS [Concomitant]
     Active Substance: OMEGA-3 FATTY ACIDS
  18. SULFATRIM [Concomitant]
     Active Substance: SULFAMETHOXAZOLE\TRIMETHOPRIM
  19. ZOLMITRIPTAN [Concomitant]
     Active Substance: ZOLMITRIPTAN
  20. WEBBER NATURALS OMEGA-3 [Concomitant]
  21. VITAMIN B12 [Concomitant]
     Active Substance: CYANOCOBALAMIN
  22. FUROSEMIDE [Concomitant]
     Active Substance: FUROSEMIDE
  23. JAMIESON PROBIOTIC [Concomitant]
  24. FERROUS FUMARATE [Concomitant]
     Active Substance: FERROUS FUMARATE
  25. PANTOPRAZOLE [Concomitant]
     Active Substance: PANTOPRAZOLE
  26. CRANBERRY ULTRA [Concomitant]
  27. ZOPICLONE [Concomitant]
     Active Substance: ZOPICLONE
  28. TOPIRAMATE [Concomitant]
     Active Substance: TOPIRAMATE
  29. MCT OIL [Concomitant]
  30. CAPRYLIC ACID [Concomitant]
     Active Substance: CAPRYLIC ACID
  31. ZINC [Concomitant]
     Active Substance: ZINC
  32. COLLAGEN COMPLEX [Concomitant]
  33. BIOTIN [Concomitant]
     Active Substance: BIOTIN

REACTIONS (3)
  - Urinary tract infection [Not Recovered/Not Resolved]
  - Urinary tract infection [Not Recovered/Not Resolved]
  - Neuromyelitis optica spectrum disorder [Not Recovered/Not Resolved]
